FAERS Safety Report 4421589-2 (Version None)
Quarter: 2004Q3

REPORT INFORMATION
  Report Type: 
  Country: None (occurrence: None)
  Receive Date: 20040804
  Receipt Date: 20040714
  Transmission Date: 20050211
  Serious: Yes (Other)
  Sender: FDA-Public Use
  Company Number: USA040772648

PATIENT
  Sex: Male

DRUGS (4)
  1. HUMATROPE [Suspect]
     Indication: GROWTH HORMONE DEFICIENCY
     Dates: start: 20021001, end: 20031101
  2. SYNTHROID [Concomitant]
  3. CORTEF [Concomitant]
  4. DDAVP [Concomitant]

REACTIONS (2)
  - CRANIOPHARYNGIOMA [None]
  - NEOPLASM RECURRENCE [None]
